FAERS Safety Report 9060922 (Version 4)
Quarter: 2013Q3

REPORT INFORMATION
  Report Type: Report from Study
  Country: CA (occurrence: CA)
  Receive Date: 20130212
  Receipt Date: 20130816
  Transmission Date: 20140515
  Serious: Yes (Death, Life-Threatening, Hospitalization)
  Sender: FDA-Public Use
  Company Number: PHHY2012CA127231

PATIENT
  Age: 41 Year
  Sex: Male

DRUGS (6)
  1. CLOZARIL [Suspect]
     Indication: SCHIZOPHRENIA
     Dosage: 300 MG
     Route: 048
     Dates: start: 20090323
  2. CLOZARIL [Suspect]
     Dosage: 400 MG
     Route: 048
  3. RADIOTHERAPY [Concomitant]
     Dosage: UNK
  4. MONOCOR [Concomitant]
     Dosage: 1/2 TAB DAILY
  5. NEXIUM 1-2-3 [Concomitant]
     Dosage: 40 MG
  6. CELEXA [Concomitant]
     Dosage: 30 MG

REACTIONS (6)
  - Neoplasm malignant [Fatal]
  - Metastases to bone [Unknown]
  - Pathological fracture [Unknown]
  - Bone pain [Unknown]
  - Lung adenocarcinoma metastatic [Unknown]
  - Large cell lung cancer stage IV [Unknown]
